FAERS Safety Report 18447972 (Version 1)
Quarter: 2020Q4

REPORT INFORMATION
  Report Type: Report from Study
  Country: JP (occurrence: JP)
  Receive Date: 20201030
  Receipt Date: 20201030
  Transmission Date: 20210114
  Serious: Yes (Death, Life-Threatening, Hospitalization, Other)
  Sender: FDA-Public Use
  Company Number: JP-JNJFOC-A-CH2017-148392

PATIENT
  Age: 38 Year
  Sex: Male

DRUGS (44)
  1. OXYGEN. [Concomitant]
     Active Substance: OXYGEN
  2. CEFAZOLIN NA [Concomitant]
     Active Substance: CEFAZOLIN SODIUM
  3. LASIX [Concomitant]
     Active Substance: FUROSEMIDE
  4. POTASSIUM CHLORIDE. [Concomitant]
     Active Substance: POTASSIUM CHLORIDE
  5. PREDONINE [Concomitant]
     Active Substance: PREDNISOLONE
  6. CLINDAMYCIN HYDROCHLORIDE. [Concomitant]
     Active Substance: CLINDAMYCIN HYDROCHLORIDE
  7. EPOPROSTENOL ACT [Suspect]
     Active Substance: EPOPROSTENOL
     Dosage: 49.23 UG/KG, PER MIN
     Route: 042
     Dates: start: 20160314
  8. REVATIO [Suspect]
     Active Substance: SILDENAFIL CITRATE
     Indication: PULMONARY ARTERIAL HYPERTENSION
     Dosage: 10 MG, TID
     Route: 048
     Dates: start: 20160329, end: 20160404
  9. GLUCONSAN K [Concomitant]
     Active Substance: POTASSIUM GLUCONATE
  10. CEFACLOR. [Concomitant]
     Active Substance: CEFACLOR
  11. PIPERACILLIN AND TAZOBACTAM [Concomitant]
     Active Substance: PIPERACILLIN SODIUM\TAZOBACTAM SODIUM
     Indication: PROPHYLAXIS
     Route: 042
     Dates: start: 20171205, end: 20171219
  12. OPSUMIT [Suspect]
     Active Substance: MACITENTAN
     Indication: PULMONARY ARTERIAL HYPERTENSION
     Dosage: 10 MG, QD
     Route: 048
     Dates: start: 20150731
  13. EPOPROSTENOL ACT [Suspect]
     Active Substance: EPOPROSTENOL
     Dosage: 53.8 UG/KG, PER MIN
     Route: 042
     Dates: end: 20160515
  14. EPOPROSTENOL ACT [Suspect]
     Active Substance: EPOPROSTENOL
     Dosage: 62 UG/KG, PER MIN
     Route: 042
  15. FEBURIC [Concomitant]
     Active Substance: FEBUXOSTAT
  16. BAKTAR [Concomitant]
     Active Substance: SULFAMETHOXAZOLE\TRIMETHOPRIM
  17. ADONA [Concomitant]
  18. SAMSCA [Concomitant]
     Active Substance: TOLVAPTAN
  19. TRANEXAMIC ACID. [Concomitant]
     Active Substance: TRANEXAMIC ACID
  20. EPOPROSTENOL ACT [Suspect]
     Active Substance: EPOPROSTENOL
     Dosage: 63 UG/KG, PER MIN
     Route: 042
     Dates: end: 201608
  21. EPOPROSTENOL ACT [Suspect]
     Active Substance: EPOPROSTENOL
     Route: 042
  22. ADCIRCA [Concomitant]
     Active Substance: TADALAFIL
  23. PRIMPERAN [Concomitant]
     Active Substance: METOCLOPRAMIDE HYDROCHLORIDE
  24. DOBUTAMINE [Concomitant]
     Active Substance: DOBUTAMINE HYDROCHLORIDE
  25. TAKECAB [Concomitant]
     Active Substance: VONOPRAZAN FUMARATE
  26. ADONA                              /00056903/ [Concomitant]
     Active Substance: CARBAZOCHROME SODIUM SULFONATE
     Indication: PROPHYLAXIS
     Route: 048
     Dates: start: 20161110, end: 20161116
  27. LEPETAN [Concomitant]
     Active Substance: BUPRENORPHINE HYDROCHLORIDE
     Indication: SEDATION
     Route: 042
     Dates: start: 20180202, end: 20180202
  28. SPIRONOLACTONE. [Concomitant]
     Active Substance: SPIRONOLACTONE
  29. LANSOPRAZOLE. [Concomitant]
     Active Substance: LANSOPRAZOLE
  30. TRANSAMIN [Concomitant]
     Active Substance: TRANEXAMIC ACID
  31. CEFZON [Concomitant]
  32. EPOPROSTENOL ACT [Suspect]
     Active Substance: EPOPROSTENOL
     Indication: PULMONARY ARTERIAL HYPERTENSION
     Dosage: 46.72 UG/KG, PER MIN
     Route: 042
     Dates: end: 20160313
  33. EPOPROSTENOL ACT [Suspect]
     Active Substance: EPOPROSTENOL
     Dosage: 55.3 UG/KG, PER MIN
     Route: 042
     Dates: start: 20160516
  34. REVATIO [Suspect]
     Active Substance: SILDENAFIL CITRATE
     Dosage: 40-50MG PER DAY
     Route: 048
     Dates: start: 20160405, end: 20160410
  35. FUROSEMIDE. [Concomitant]
     Active Substance: FUROSEMIDE
  36. HANP [Concomitant]
     Active Substance: CARPERITIDE
  37. PRECEDEX [Concomitant]
     Active Substance: DEXMEDETOMIDINE HYDROCHLORIDE
     Indication: SEDATION
     Dosage: 1 ML
     Route: 042
     Dates: start: 20180202, end: 20180203
  38. REVATIO [Suspect]
     Active Substance: SILDENAFIL CITRATE
     Dosage: 20 MG, TID
     Route: 048
     Dates: start: 20160419
  39. LUPRAC [Concomitant]
     Active Substance: TORSEMIDE
  40. BONALON [Concomitant]
     Active Substance: ALENDRONATE SODIUM
     Dosage: 35 MG, UNK
  41. THYRADIN S [Concomitant]
     Active Substance: LEVOTHYROXINE SODIUM
  42. UPTRAVI [Concomitant]
     Active Substance: SELEXIPAG
  43. OMEPRAZOLE                         /00661202/ [Concomitant]
     Active Substance: OMEPRAZOLE SODIUM
     Indication: PROPHYLAXIS
     Route: 042
     Dates: start: 20171118, end: 20171128
  44. LEVOFLOXACIN HEMIHYDRATE [Concomitant]
     Active Substance: LEVOFLOXACIN
     Indication: PROPHYLAXIS
     Route: 048
     Dates: start: 20180116, end: 20180122

REACTIONS (27)
  - Right ventricular failure [Fatal]
  - Adrenal insufficiency [Not Recovered/Not Resolved]
  - Anaemia [Recovering/Resolving]
  - Haemoptysis [Recovered/Resolved]
  - Weight increased [Recovering/Resolving]
  - Granulocyte count decreased [Recovered/Resolved]
  - Pseudomembranous colitis [Not Recovered/Not Resolved]
  - Syncope [Recovered/Resolved]
  - Fluid overload [Recovering/Resolving]
  - Septic shock [Recovered/Resolved]
  - Device related infection [Recovered/Resolved]
  - Brain natriuretic peptide increased [Recovering/Resolving]
  - Concomitant disease aggravated [Fatal]
  - Dyspnoea [Recovering/Resolving]
  - Biliary colic [Recovering/Resolving]
  - Shock [Recovered/Resolved]
  - Thrombocytopenia [Recovering/Resolving]
  - Platelet transfusion [Unknown]
  - Pneumonia [Recovered/Resolved]
  - Transfusion [Unknown]
  - Pyrexia [Recovered/Resolved]
  - Disseminated intravascular coagulation [Recovered/Resolved]
  - Sepsis [Recovered/Resolved]
  - Catheter management [Unknown]
  - Rash [Recovered/Resolved]
  - Chills [Recovered/Resolved]
  - Haematochezia [Recovered/Resolved]

NARRATIVE: CASE EVENT DATE: 201602
